FAERS Safety Report 25540278 (Version 2)
Quarter: 2025Q3

REPORT INFORMATION
  Report Type: Spontaneous
  Country: CA (occurrence: CA)
  Receive Date: 20250710
  Receipt Date: 20250718
  Transmission Date: 20251021
  Serious: No
  Sender: BIOMARIN
  Company Number: CA-SA-2025SA165638

PATIENT
  Age: 13 Year
  Sex: Male

DRUGS (3)
  1. LARONIDASE [Suspect]
     Active Substance: LARONIDASE
     Indication: Mucopolysaccharidosis I
     Dosage: 31.9 MG, QW
     Dates: start: 20170828
  2. Reactine [Concomitant]
     Indication: Premedication
  3. EMLA [Concomitant]
     Active Substance: LIDOCAINE\PRILOCAINE
     Indication: Premedication

REACTIONS (4)
  - Ligament sprain [Unknown]
  - Back pain [Recovered/Resolved]
  - Musculoskeletal stiffness [Unknown]
  - Limb operation [Unknown]

NARRATIVE: CASE EVENT DATE: 20250630
